FAERS Safety Report 8228650-5 (Version None)
Quarter: 2012Q1

REPORT INFORMATION
  Report Type: 
  Country: None (occurrence: None)
  Receive Date: 20120322
  Receipt Date: 20110922
  Transmission Date: 20120608
  Serious: Yes (Hospitalization, Other)
  Sender: FDA-Public Use
  Company Number: US-BRISTOL-MYERS SQUIBB COMPANY-15536543

PATIENT
  Age: 40 Year
  Sex: Male

DRUGS (3)
  1. ERBITUX [Suspect]
     Indication: COLON CANCER
     Dosage: INF:1.REG-500MG/M2.
     Route: 042
     Dates: start: 20110112, end: 20110112
  2. ERBITUX [Suspect]
     Indication: COLORECTAL CANCER METASTATIC
     Dosage: INF:1.REG-500MG/M2.
     Route: 042
     Dates: start: 20110112, end: 20110112
  3. BENADRYL [Concomitant]
     Indication: PREMEDICATION
     Dosage: IV 25 MG
     Route: 042

REACTIONS (3)
  - DIZZINESS [None]
  - ATRIAL FIBRILLATION [None]
  - LOSS OF CONSCIOUSNESS [None]
